FAERS Safety Report 25667825 (Version 2)
Quarter: 2025Q3

REPORT INFORMATION
  Report Type: Spontaneous
  Country: US (occurrence: US)
  Receive Date: 20250812
  Receipt Date: 20250822
  Transmission Date: 20251021
  Serious: Yes (Life-Threatening, Hospitalization, Disabling, Other)
  Sender: KVK-TECH
  Company Number: US-KVK-TECH, INC-20250800124

PATIENT

DRUGS (29)
  1. OXYCODONE HYDROCHLORIDE [Suspect]
     Active Substance: OXYCODONE HYDROCHLORIDE
     Indication: Product used for unknown indication
     Route: 065
  2. ABILIFY MAINTENA [Suspect]
     Active Substance: ARIPIPRAZOLE
     Indication: Schizophrenia
     Route: 065
  3. ABILIFY MAINTENA [Suspect]
     Active Substance: ARIPIPRAZOLE
     Indication: Depression
     Route: 065
     Dates: start: 2017
  4. ABILIFY MAINTENA [Suspect]
     Active Substance: ARIPIPRAZOLE
     Indication: Bipolar disorder
     Route: 065
  5. ABILIFY MAINTENA [Suspect]
     Active Substance: ARIPIPRAZOLE
     Route: 065
  6. ABILIFY MAINTENA [Suspect]
     Active Substance: ARIPIPRAZOLE
     Route: 065
  7. ABILIFY MAINTENA [Suspect]
     Active Substance: ARIPIPRAZOLE
     Route: 065
  8. ABILIFY [Suspect]
     Active Substance: ARIPIPRAZOLE
     Indication: Schizophrenia
     Route: 065
  9. ABILIFY [Suspect]
     Active Substance: ARIPIPRAZOLE
     Indication: Depression
     Route: 065
  10. ABILIFY [Suspect]
     Active Substance: ARIPIPRAZOLE
     Indication: Bipolar disorder
     Route: 065
  11. ABILIFY [Suspect]
     Active Substance: ARIPIPRAZOLE
     Route: 048
     Dates: start: 2017
  12. ABILIFY [Suspect]
     Active Substance: ARIPIPRAZOLE
     Route: 065
  13. ABILIFY [Suspect]
     Active Substance: ARIPIPRAZOLE
     Route: 065
  14. PHENOL\ZINC OXIDE [Suspect]
     Active Substance: PHENOL\ZINC OXIDE
     Indication: Product used for unknown indication
     Route: 065
  15. LUNESTA [Suspect]
     Active Substance: ESZOPICLONE
     Indication: Sleep disorder
     Route: 065
  16. INVEGA [Suspect]
     Active Substance: PALIPERIDONE
     Indication: Product used for unknown indication
     Route: 065
  17. WELLBUTRIN [Suspect]
     Active Substance: BUPROPION HYDROCHLORIDE
     Indication: Product used for unknown indication
     Route: 065
  18. AMLODIPINE [Concomitant]
     Active Substance: AMLODIPINE BESYLATE
  19. HYDRALAZINE [Concomitant]
     Active Substance: HYDRALAZINE HYDROCHLORIDE
  20. JANUMET [Concomitant]
     Active Substance: METFORMIN HYDROCHLORIDE\SITAGLIPTIN PHOSPHATE
  21. SPIRONOLACTONE [Concomitant]
     Active Substance: SPIRONOLACTONE
  22. ROSUVASTATIN [Concomitant]
     Active Substance: ROSUVASTATIN
  23. LABETALOL [Concomitant]
     Active Substance: LABETALOL
  24. LISINOPRIL [Concomitant]
     Active Substance: LISINOPRIL
  25. CARVEDILOL [Concomitant]
     Active Substance: CARVEDILOL
  26. MINOXIDIL [Concomitant]
     Active Substance: MINOXIDIL
  27. PANTOPRAZOLE [Concomitant]
     Active Substance: PANTOPRAZOLE
  28. ROLAIDS [Concomitant]
     Active Substance: CALCIUM CARBONATE\MAGNESIUM HYDROXIDE
  29. GABAPENTIN [Concomitant]
     Active Substance: GABAPENTIN

REACTIONS (44)
  - Near death experience [Unknown]
  - Wheelchair user [Not Recovered/Not Resolved]
  - Cerebrovascular accident [Unknown]
  - Gait inability [Recovering/Resolving]
  - Vision blurred [Unknown]
  - Glaucoma [Unknown]
  - Asthma [Unknown]
  - Cardiac failure congestive [Unknown]
  - Dementia Alzheimer^s type [Unknown]
  - Myocardial infarction [Unknown]
  - Diabetes mellitus [Unknown]
  - Bronchitis [Unknown]
  - Dyspnoea [Unknown]
  - Bowel movement irregularity [Unknown]
  - Bile output abnormal [Unknown]
  - Anosmia [Unknown]
  - Injection site muscle weakness [Unknown]
  - Muscle disorder [Unknown]
  - Arthropathy [Unknown]
  - General physical health deterioration [Unknown]
  - Hypoacusis [Unknown]
  - Muscular dystrophy [Unknown]
  - Blood pressure abnormal [Unknown]
  - Visual impairment [Unknown]
  - Amnesia [Unknown]
  - Ageusia [Unknown]
  - Blood glucose abnormal [Unknown]
  - Feeling abnormal [Unknown]
  - Hypoaesthesia [Unknown]
  - Pain [Unknown]
  - Aggression [Unknown]
  - Gastrooesophageal reflux disease [Unknown]
  - Muscle spasms [Unknown]
  - Fall [Unknown]
  - Tremor [Unknown]
  - Speech disorder [Unknown]
  - Constipation [Unknown]
  - Headache [Unknown]
  - Dizziness [Unknown]
  - Nausea [Unknown]
  - Vomiting [Unknown]
  - Myalgia [Unknown]
  - Anxiety [Unknown]
  - Economic problem [Unknown]

NARRATIVE: CASE EVENT DATE: 20180101
